FAERS Safety Report 19825032 (Version 1)
Quarter: 2021Q3

REPORT INFORMATION
  Report Type: Spontaneous
  Country: US (occurrence: US)
  Receive Date: 20210913
  Receipt Date: 20210913
  Transmission Date: 20211014
  Serious: Yes (Other)
  Sender: FDA-Public Use
  Company Number: None

PATIENT
  Age: 51 Year
  Sex: Male
  Weight: 98.43 kg

DRUGS (2)
  1. REGEN?COV [Concomitant]
     Active Substance: CASIRIVIMAB\IMDEVIMAB
     Dates: start: 20210913, end: 20210913
  2. REGEN?COV [Suspect]
     Active Substance: CASIRIVIMAB\IMDEVIMAB
     Indication: COVID-19 TREATMENT

REACTIONS (7)
  - Feeling hot [None]
  - Cold sweat [None]
  - Nausea [None]
  - Presyncope [None]
  - Dizziness [None]
  - Hyperhidrosis [None]
  - Blood pressure decreased [None]

NARRATIVE: CASE EVENT DATE: 20210913
